FAERS Safety Report 8400483-6 (Version None)
Quarter: 2012Q2

REPORT INFORMATION
  Report Type: 
  Country: None (occurrence: None)
  Receive Date: 20120531
  Receipt Date: 20110614
  Transmission Date: 20120825
  Serious: No
  Sender: FDA-Public Use
  Company Number: US-NOVEN-11US002637

PATIENT
  Sex: Female

DRUGS (1)
  1. DAYTRANA [Suspect]
     Indication: ATTENTION DEFICIT/HYPERACTIVITY DISORDER
     Dosage: 10 MG, QD
     Route: 062

REACTIONS (8)
  - DRUG ADMINISTRATION ERROR [None]
  - CRYING [None]
  - MOOD SWINGS [None]
  - INCORRECT DOSE ADMINISTERED [None]
  - PRODUCT QUALITY ISSUE [None]
  - DRUG INEFFECTIVE [None]
  - INCORRECT DRUG ADMINISTRATION DURATION [None]
  - DRUG PRESCRIBING ERROR [None]
